FAERS Safety Report 18628248 (Version 1)
Quarter: 2020Q4

REPORT INFORMATION
  Report Type: Spontaneous
  Country: US (occurrence: US)
  Receive Date: 20201217
  Receipt Date: 20201217
  Transmission Date: 20210114
  Serious: No
  Sender: FDA-Public Use
  Company Number: None

PATIENT
  Age: 76 Year
  Sex: Female
  Weight: 79.6 kg

DRUGS (7)
  1. EXEMESTANE. [Concomitant]
     Active Substance: EXEMESTANE
  2. PREDNISOLONE. [Concomitant]
     Active Substance: PREDNISOLONE
  3. LEVOTHYROXINE. [Concomitant]
     Active Substance: LEVOTHYROXINE
  4. COD LIVER OIL [Concomitant]
     Active Substance: COD LIVER OIL
  5. BRIMONIDINE [Concomitant]
     Active Substance: BRIMONIDINE TARTRATE
  6. IBRANCE [Suspect]
     Active Substance: PALBOCICLIB
     Indication: BREAST CANCER
     Route: 048
     Dates: start: 20201120
  7. CLARITIN [Concomitant]
     Active Substance: LORATADINE

REACTIONS (1)
  - Erythema [None]

NARRATIVE: CASE EVENT DATE: 20201202
